FAERS Safety Report 12315761 (Version 1)
Quarter: 2016Q2

REPORT INFORMATION
  Report Type: Report from Study
  Country: BR (occurrence: BR)
  Receive Date: 20160428
  Receipt Date: 20160428
  Transmission Date: 20160815
  Serious: Yes (Death)
  Sender: FDA-Public Use
  Company Number: PHHY2016BR057776

PATIENT
  Age: 84 Year
  Sex: Male

DRUGS (1)
  1. EXELON PATCH [Suspect]
     Active Substance: RIVASTIGMINE
     Indication: STRESS
     Dosage: PATCH 5 (CM2)
     Route: 062
     Dates: end: 20160313

REACTIONS (8)
  - Asthenia [Unknown]
  - Blood pressure decreased [Unknown]
  - Cardiac disorder [Unknown]
  - Product use issue [Unknown]
  - Death [Fatal]
  - Pleural effusion [Unknown]
  - Fluid retention [Unknown]
  - Drug ineffective [Unknown]

NARRATIVE: CASE EVENT DATE: 20160314
